FAERS Safety Report 25234650 (Version 1)
Quarter: 2025Q2

REPORT INFORMATION
  Report Type: Spontaneous
  Country: PT (occurrence: PT)
  Receive Date: 20250424
  Receipt Date: 20250424
  Transmission Date: 20250716
  Serious: Yes (Hospitalization, Other)
  Sender: ACCORD
  Company Number: PT-Accord-480551

PATIENT
  Age: 77 Year
  Sex: Male

DRUGS (2)
  1. ONDANSETRON [Suspect]
     Active Substance: ONDANSETRON
     Indication: Premedication
  2. DEXAMETHASONE [Concomitant]
     Active Substance: DEXAMETHASONE
     Indication: Premedication

REACTIONS (7)
  - Somnolence [Recovered/Resolved]
  - Hemiparesis [Recovered/Resolved]
  - Altered state of consciousness [Recovered/Resolved]
  - Mobility decreased [Recovered/Resolved]
  - Facial paresis [Recovered/Resolved]
  - Pupillary light reflex tests abnormal [Recovered/Resolved]
  - Miosis [Recovered/Resolved]
